FAERS Safety Report 25172228 (Version 2)
Quarter: 2025Q2

REPORT INFORMATION
  Report Type: Spontaneous
  Country: GB (occurrence: GB)
  Receive Date: 20250408
  Receipt Date: 20250416
  Transmission Date: 20250717
  Serious: Yes (Hospitalization)
  Sender: MYLAN
  Company Number: GB-MYLANLABS-2025M1029096

PATIENT
  Sex: Female

DRUGS (8)
  1. CLOZARIL [Suspect]
     Active Substance: CLOZAPINE
     Indication: Schizophrenia
     Route: 048
     Dates: start: 20010701, end: 20250406
  2. CLOZARIL [Suspect]
     Active Substance: CLOZAPINE
     Dates: start: 20010701, end: 20250406
  3. CLOZARIL [Suspect]
     Active Substance: CLOZAPINE
     Dates: start: 20010701, end: 20250406
  4. CLOZARIL [Suspect]
     Active Substance: CLOZAPINE
     Route: 048
     Dates: start: 20010701, end: 20250406
  5. CLOZARIL [Suspect]
     Active Substance: CLOZAPINE
     Route: 048
  6. CLOZARIL [Suspect]
     Active Substance: CLOZAPINE
  7. CLOZARIL [Suspect]
     Active Substance: CLOZAPINE
  8. CLOZARIL [Suspect]
     Active Substance: CLOZAPINE
     Route: 048

REACTIONS (4)
  - Hospitalisation [Unknown]
  - Lower respiratory tract infection [Unknown]
  - Orthostatic hypotension [Unknown]
  - Fall [Unknown]
